FAERS Safety Report 18918379 (Version 1)
Quarter: 2021Q1

REPORT INFORMATION
  Report Type: Report from Study
  Country: US (occurrence: US)
  Receive Date: 20210219
  Receipt Date: 20210219
  Transmission Date: 20210420
  Serious: Yes (Hospitalization)
  Sender: FDA-Public Use
  Company Number: US-TEVA-2021-US-1881363

PATIENT
  Age: 50 Year
  Sex: Female
  Weight: 87.2 kg

DRUGS (34)
  1. CYCLOPHOSPHAMIDE. [Suspect]
     Active Substance: CYCLOPHOSPHAMIDE
     Indication: TRIPLE NEGATIVE BREAST CANCER
     Dosage: DAY 1 OF 21?DAY CYCLE DURING CHEMOTHERAPY SEGMENT 2 (600 MG/M2,1 IN 21 D)
     Route: 042
     Dates: start: 20151008
  2. PHENERGAN [Concomitant]
     Active Substance: PROMETHAZINE HYDROCHLORIDE
     Indication: NAUSEA
     Dosage: (25 MG,AS REQUIRED)
     Route: 048
     Dates: start: 20150615
  3. PACLITAXEL. [Suspect]
     Active Substance: PACLITAXEL
     Indication: TRIPLE NEGATIVE BREAST CANCER
     Dosage: DAY 1 OF 12 WEEKLY CYCLES DURING CHEMOTHERAPY SEGMENT 1 (80 MG/M2)
     Route: 042
     Dates: start: 20150615, end: 20150707
  4. ALLEGRA [Concomitant]
     Active Substance: FEXOFENADINE HYDROCHLORIDE
     Indication: HYPERSENSITIVITY
     Route: 048
     Dates: start: 20150512
  5. PEPCID [Concomitant]
     Active Substance: FAMOTIDINE
     Indication: PROPHYLAXIS
     Dosage: PRIOR TO CHEMOTHERAPY (20 MG)
     Route: 042
     Dates: start: 20150615
  6. TYLENOL [Concomitant]
     Active Substance: ACETAMINOPHEN
     Indication: HEADACHE
     Dosage: (650 MG,AS REQUIRED)
     Route: 048
     Dates: start: 20150615
  7. COUMADIN [Concomitant]
     Active Substance: WARFARIN SODIUM
     Indication: DIVERTICULITIS
     Dosage: 5?10 MG (1 IN 1 D)
     Route: 048
     Dates: start: 20150604
  8. VISINE [Concomitant]
     Active Substance: TETRAHYDROZOLINE HYDROCHLORIDE
     Indication: HYPERSENSITIVITY
     Route: 047
     Dates: start: 2010
  9. VITAMIN D3 [Concomitant]
     Active Substance: CHOLECALCIFEROL
     Indication: VITAMIN SUPPLEMENTATION
     Dosage: 1000 IU (1000 IU,1 IN 1 D)
     Route: 048
     Dates: start: 20150501, end: 20150707
  10. ZOFRAN ODT [Concomitant]
     Active Substance: ONDANSETRON HYDROCHLORIDE
     Indication: NAUSEA
     Dosage: 8 MG, AS REQUIRED
     Route: 048
     Dates: start: 20150615
  11. DRISDOL [Concomitant]
     Active Substance: ERGOCALCIFEROL
     Indication: VITAMIN D DEFICIENCY
     Dosage: 50000 IU (50000 IU,1 IN 1 D)
     Route: 048
     Dates: start: 20150708
  12. OMEPRAZOLE. [Concomitant]
     Active Substance: OMEPRAZOLE
     Indication: DYSPEPSIA
     Dosage: 40 MG (20 MG,2 IN 1 D)
     Route: 048
     Dates: start: 20150621
  13. ABT?888 [Suspect]
     Active Substance: VELIPARIB
     Indication: TRIPLE NEGATIVE BREAST CANCER
     Dosage: DAILY THROUGH CHEMOTHERAPY SEGMENT 1 (50 MG,2 IN 1 D)
     Route: 048
     Dates: start: 20150615, end: 20150914
  14. ALOXI [Concomitant]
     Active Substance: PALONOSETRON HYDROCHLORIDE
     Indication: PROPHYLAXIS OF NAUSEA AND VOMITING
     Dosage: PRIOR TO CHEMOTHERAPY (0.25 MG)
     Route: 042
     Dates: start: 20150615
  15. LOVENOX [Concomitant]
     Active Substance: ENOXAPARIN SODIUM
     Indication: DIVERTICULITIS
     Dosage: 200 MG (100 MG,2 IN 1 D)
     Route: 058
     Dates: start: 20150704, end: 20150713
  16. TRAMADOL. [Concomitant]
     Active Substance: TRAMADOL
     Indication: BONE PAIN
     Dosage: (50 MG,AS REQUIRED)
     Route: 048
     Dates: start: 20150707
  17. PACLITAXEL. [Suspect]
     Active Substance: PACLITAXEL
     Dosage: DAY 1 OF 12 WEEKLY CYCLES DURING CHEMOTHERAPY SEGMENT 1 (70 MG/M2)
     Route: 042
     Dates: start: 20150728, end: 20150922
  18. ZANTAC [Concomitant]
     Active Substance: RANITIDINE HYDROCHLORIDE
     Indication: GASTROOESOPHAGEAL REFLUX DISEASE
     Dosage: 300 MG (150 MG,2 IN 1 D)
     Route: 048
     Dates: start: 20150512
  19. VENTOLIN HFA [Concomitant]
     Active Substance: ALBUTEROL SULFATE
     Indication: ASTHMA
     Dosage: (90 MCG,AS REQUIRED)
     Route: 048
     Dates: start: 20150512
  20. DECADRON [Concomitant]
     Active Substance: DEXAMETHASONE
     Dosage: PRIOR TO CHEMOTHERAPY (20 MG)
     Route: 042
     Dates: start: 20150615
  21. CARBOPLATIN. [Suspect]
     Active Substance: CARBOPLATIN
     Indication: TRIPLE NEGATIVE BREAST CANCER
     Dosage: AUC 6 DAY 1 OF 21?DAY CYCLE DURING CHEMOTHERAPY SEGMENT 1
     Route: 042
     Dates: start: 20150615, end: 20150707
  22. ATIVAN [Concomitant]
     Active Substance: LORAZEPAM
     Indication: NAUSEA
     Dosage: (1 MG,AS REQUIRED)
     Route: 048
     Dates: start: 20150615
  23. PSYLLIUM FIBER [Concomitant]
     Indication: CONSTIPATION
     Dosage: 3 CAPSULE (3 CAPSULE,1 IN 1 D)
     Route: 048
     Dates: start: 20150615
  24. PSYLLIUM FIBER [Concomitant]
     Indication: CONSTIPATION PROPHYLAXIS
  25. CARBOPLATIN. [Suspect]
     Active Substance: CARBOPLATIN
     Dosage: AUC 5 DAY 1 OF 21?DAY CYCLE DURING CHEMOTHERAPY SEGMENT 1
     Route: 042
     Dates: start: 20150728, end: 20150825
  26. DOXORUBICIN [Suspect]
     Active Substance: DOXORUBICIN
     Indication: TRIPLE NEGATIVE BREAST CANCER
     Dosage: DAY 1 OF 21?DAY CYCLE DURING CHEMOTHERAPY SEGMENT 2 (60 MG/M2,1 IN 21 D)
     Route: 042
     Dates: start: 20151008
  27. ATIVAN [Concomitant]
     Active Substance: LORAZEPAM
     Dosage: (0.5 MG, AS REQUIRED)
     Route: 048
     Dates: start: 20150615
  28. COLACE [Concomitant]
     Active Substance: DOCUSATE SODIUM
     Indication: CONSTIPATION
     Dosage: 400 MG (200 MG,2 IN 1 D)
     Route: 048
     Dates: start: 20150616
  29. OXYCODONE [Concomitant]
     Active Substance: OXYCODONE
     Indication: PROCEDURAL PAIN
  30. DECADRON [Concomitant]
     Active Substance: DEXAMETHASONE
     Indication: PREMEDICATION
     Dosage: 12H AND 6H BEFORE CHEMOTHERAPY (4 MG)
     Route: 048
     Dates: start: 20150614
  31. BENADRYL [Concomitant]
     Active Substance: DIPHENHYDRAMINE HYDROCHLORIDE
     Indication: PREMEDICATION
     Dosage: PRIOR TO CHEMOTHERAPY (50 MG)
     Route: 042
     Dates: start: 20150615
  32. COLACE [Concomitant]
     Active Substance: DOCUSATE SODIUM
     Indication: CONSTIPATION PROPHYLAXIS
  33. OXYCODONE [Concomitant]
     Active Substance: OXYCODONE
     Indication: BONE PAIN
     Dosage: (5 MG,AS REQUIRED)
     Route: 048
     Dates: start: 20150707
  34. VITAMIN B12 [Concomitant]
     Active Substance: CYANOCOBALAMIN
     Indication: VITAMIN SUPPLEMENTATION
     Dosage: 2500 MCG (2500 MCG,1 IN 1 D)
     Route: 048
     Dates: start: 20150501

REACTIONS (1)
  - Febrile neutropenia [Recovered/Resolved]

NARRATIVE: CASE EVENT DATE: 20151125
